FAERS Safety Report 7569941-0 (Version None)
Quarter: 2011Q2

REPORT INFORMATION
  Report Type: 
  Country: None (occurrence: None)
  Receive Date: 20110622
  Receipt Date: 20110622
  Transmission Date: 20111010
  Serious: Yes (Life-Threatening, Other)
  Sender: FDA-Public Use
  Company Number: None

PATIENT
  Age: 50 Year
  Sex: Female
  Weight: 83.0083 kg

DRUGS (1)
  1. SIMVASTATIN [Suspect]
     Indication: BLOOD CHOLESTEROL
     Dosage: 1 TABLET EVERY NIGHT PO
     Route: 048

REACTIONS (6)
  - CHEST DISCOMFORT [None]
  - MUSCLE TIGHTNESS [None]
  - MYALGIA [None]
  - BLOOD URINE PRESENT [None]
  - HYPOAESTHESIA [None]
  - LIVER INJURY [None]
